FAERS Safety Report 15122464 (Version 1)
Quarter: 2018Q3

REPORT INFORMATION
  Report Type: Spontaneous
  Country: MY (occurrence: MY)
  Receive Date: 20180709
  Receipt Date: 20180709
  Transmission Date: 20181010
  Serious: Yes (Death, Hospitalization, Other)
  Sender: FDA-Public Use
  Company Number: MY-PFIZER INC-2018270664

PATIENT
  Age: 32 Year
  Sex: Male

DRUGS (2)
  1. SUTENT [Suspect]
     Active Substance: SUNITINIB MALATE
     Indication: METASTATIC RENAL CELL CARCINOMA
     Dosage: 50 MG, ONCE DAILY (4/2 SCHEDULE)
     Dates: start: 201805, end: 2018
  2. SUTENT [Suspect]
     Active Substance: SUNITINIB MALATE
     Dosage: 37.5 MG, UNKNOWN FREQUENCY (2/1 SCHEDULE)
     Dates: start: 2018, end: 2018

REACTIONS (7)
  - Acute kidney injury [Unknown]
  - Diarrhoea [Unknown]
  - Bedridden [Unknown]
  - Death [Fatal]
  - Mucosal inflammation [Unknown]
  - Fatigue [Unknown]
  - Dehydration [Unknown]

NARRATIVE: CASE EVENT DATE: 2018
